FAERS Safety Report 7306796-3 (Version None)
Quarter: 2011Q1

REPORT INFORMATION
  Report Type: 
  Country: None (occurrence: None)
  Receive Date: 20110223
  Receipt Date: 20110214
  Transmission Date: 20110831
  Serious: Yes (Hospitalization, Other)
  Sender: FDA-Public Use
  Company Number: AU-BAYER-2011-013772

PATIENT
  Sex: Female
  Weight: 55 kg

DRUGS (1)
  1. ULTRAVIST 150 [Suspect]
     Dosage: 100 ML, ONCE
     Route: 042
     Dates: start: 20110104, end: 20110104

REACTIONS (4)
  - LARYNGOSPASM [None]
  - DYSPHAGIA [None]
  - THROAT TIGHTNESS [None]
  - OEDEMA [None]
